FAERS Safety Report 24019854 (Version 1)
Quarter: 2024Q2

REPORT INFORMATION
  Report Type: Spontaneous
  Country: IT (occurrence: IT)
  Receive Date: 20240627
  Receipt Date: 20240627
  Transmission Date: 20240716
  Serious: Yes (Other)
  Sender: FDA-Public Use
  Company Number: IT-ELI_LILLY_AND_COMPANY-IT202406004067

PATIENT
  Age: 69 Year

DRUGS (2)
  1. PEMETREXED [Suspect]
     Active Substance: PEMETREXED
     Indication: Pleural mesothelioma
     Dosage: UNK UNK, CYCLICAL?FORM OF ADMIN:  INJECTION?ROUTE OF ADMIN: UNKNOWN
     Dates: start: 20221213, end: 20230213
  2. CARBOPLATIN [Concomitant]
     Active Substance: CARBOPLATIN
     Indication: Pleural mesothelioma
     Dosage: UNK UNK, CYCLICAL?FOA: UNKNOWN
     Dates: start: 20221213, end: 20230213

REACTIONS (2)
  - Malignant neoplasm progression [Unknown]
  - Renal failure [Unknown]
